FAERS Safety Report 24036779 (Version 2)
Quarter: 2024Q3

REPORT INFORMATION
  Report Type: Spontaneous
  Country: US (occurrence: US)
  Receive Date: 20240701
  Receipt Date: 20240706
  Transmission Date: 20241017
  Serious: No
  Sender: ABBVIE
  Company Number: US-ABBVIE-5820489

PATIENT
  Sex: Female
  Weight: 53 kg

DRUGS (3)
  1. SYNTHROID [Suspect]
     Active Substance: LEVOTHYROXINE SODIUM
     Indication: Hypothyroidism
     Dosage: FORM STRENGTH: 112 MICROGRAM
     Route: 048
     Dates: start: 2006
  2. VITAMIN D [Concomitant]
     Active Substance: VITAMIN D NOS
     Indication: Product used for unknown indication
  3. CALCIUM [Concomitant]
     Active Substance: CALCIUM
     Indication: Osteoporosis

REACTIONS (7)
  - Brain fog [Recovered/Resolved]
  - Memory impairment [Recovered/Resolved]
  - Blood thyroid stimulating hormone abnormal [Recovering/Resolving]
  - Body temperature abnormal [Recovered/Resolved]
  - Malaise [Recovering/Resolving]
  - Aphasia [Recovered/Resolved]
  - Off label use [Not Recovered/Not Resolved]

NARRATIVE: CASE EVENT DATE: 20200101
